FAERS Safety Report 9180872 (Version 2)
Quarter: 2014Q1

REPORT INFORMATION
  Report Type: Spontaneous
  Country: US (occurrence: US)
  Receive Date: 20130322
  Receipt Date: 20140127
  Transmission Date: 20141002
  Serious: Yes (Hospitalization)
  Sender: FDA-Public Use
  Company Number: US-BAYER-2013-034351

PATIENT
  Age: 27 Year
  Sex: Female
  Weight: 136.5 kg

DRUGS (3)
  1. MIRENA [Suspect]
     Indication: CONTRACEPTION
     Dosage: 20 MCG/24HR, CONT
     Route: 015
     Dates: start: 20080905, end: 20100303
  2. ALBUTEROL [Concomitant]
     Dosage: 90 MCG/ACTUATION PRN
     Dates: start: 1999
  3. MULTIVITAMIN [Concomitant]
     Dosage: DAILY

REACTIONS (12)
  - Placenta praevia [Recovered/Resolved]
  - Uterine perforation [None]
  - Pregnancy with contraceptive device [Recovered/Resolved]
  - Pain [None]
  - Injury [None]
  - Breast tenderness [Recovered/Resolved]
  - Nausea [Recovered/Resolved]
  - Amenorrhoea [Recovered/Resolved]
  - Device difficult to use [None]
  - Menorrhagia [None]
  - Emotional distress [None]
  - Drug ineffective [None]
